FAERS Safety Report 4760461-5 (Version None)
Quarter: 2005Q3

REPORT INFORMATION
  Report Type: 
  Country: None (occurrence: None)
  Receive Date: 20050826
  Receipt Date: 20050310
  Transmission Date: 20060218
  Serious: Yes (Other)
  Sender: FDA-Public Use
  Company Number: 2015349

PATIENT
  Age: 42 Year
  Sex: Male
  Weight: 104.3 kg

DRUGS (17)
  1. OXYCONTIN [Suspect]
     Indication: PAIN
     Dosage: 20 MG, Q12H, ORAL
     Route: 048
  2. CLONIDINE [Concomitant]
  3. XANAX [Concomitant]
  4. BIAXIN [Concomitant]
  5. CELEBREX [Concomitant]
  6. NEURONTIN [Concomitant]
  7. NORVASC [Concomitant]
  8. VIOXX [Concomitant]
  9. ACETAMINOPHEN AND HYDROCODONE BITARTRATE [Concomitant]
  10. PROCARDIA [Concomitant]
  11. VISTARIL [Concomitant]
  12. NALBUPHINE HCL [Concomitant]
  13. PROMETHAZINE HCL [Concomitant]
  14. ANCEF [Concomitant]
  15. AMOXICILLIN [Concomitant]
  16. NITROSTAT [Concomitant]
  17. PRINIVIL [Concomitant]

REACTIONS (21)
  - ANXIETY [None]
  - ASTHENIA [None]
  - BITE [None]
  - BLOOD CHOLESTEROL INCREASED [None]
  - BRONCHITIS [None]
  - CHILLS [None]
  - COUGH [None]
  - DECREASED APPETITE [None]
  - DEPRESSION [None]
  - DIARRHOEA [None]
  - DRUG DEPENDENCE [None]
  - DYSPNOEA [None]
  - EMOTIONAL DISTRESS [None]
  - INFLUENZA LIKE ILLNESS [None]
  - INJURY [None]
  - MENTAL DISORDER [None]
  - NAUSEA [None]
  - PAIN [None]
  - PYREXIA [None]
  - RASH PUSTULAR [None]
  - SINUSITIS [None]
